FAERS Safety Report 4555627-3 (Version None)
Quarter: 2005Q1

REPORT INFORMATION
  Report Type: 
  Country: None (occurrence: None)
  Receive Date: 20050119
  Receipt Date: 20050118
  Transmission Date: 20050727
  Serious: Yes (Life-Threatening)
  Sender: FDA-Public Use
  Company Number: PHBS2005FI00986

PATIENT
  Age: 75 Year
  Sex: Male

DRUGS (6)
  1. BEXTRA [Suspect]
     Indication: PAIN
     Dosage: 20-40 MG/D
     Dates: start: 20041029, end: 20041112
  2. EXELON [Suspect]
     Indication: DEMENTIA
     Dosage: 3 MG/D
     Route: 048
     Dates: start: 20041105, end: 20041112
  3. SINEMET [Concomitant]
  4. CIPRALEX [Concomitant]
     Dosage: 10 MG/D
     Dates: start: 20041101
  5. COHEMIN DEPOT [Concomitant]
     Dates: start: 20041102
  6. PROSCAR [Concomitant]
     Dosage: 5 MG/D
     Dates: start: 20041101

REACTIONS (2)
  - HAEMOGLOBIN DECREASED [None]
  - OESOPHAGITIS ULCERATIVE [None]
